FAERS Safety Report 12551959 (Version 1)
Quarter: 2016Q3

REPORT INFORMATION
  Report Type: Report from Study
  Country: US (occurrence: US)
  Receive Date: 20160713
  Receipt Date: 20160713
  Transmission Date: 20161109
  Serious: Yes (Hospitalization, Other)
  Sender: FDA-Public Use
  Company Number: US-GILEAD-2016-0222806

PATIENT
  Age: 64 Year
  Sex: Female

DRUGS (6)
  1. VITAMIN D [Concomitant]
     Active Substance: CHOLECALCIFEROL
  2. NIFEDIPINE. [Concomitant]
     Active Substance: NIFEDIPINE
  3. CALTRATE                           /00944201/ [Concomitant]
  4. NEXIUM [Concomitant]
     Active Substance: ESOMEPRAZOLE MAGNESIUM
  5. AMBRISENTAN [Suspect]
     Active Substance: AMBRISENTAN
     Indication: PULMONARY HYPERTENSION
     Dosage: 5 MG, QD
     Route: 065
     Dates: start: 20150429
  6. ELIQUIS [Concomitant]
     Active Substance: APIXABAN

REACTIONS (1)
  - Gallbladder operation [Recovered/Resolved]
